FAERS Safety Report 12224593 (Version 1)
Quarter: 2016Q1

REPORT INFORMATION
  Report Type: Spontaneous
  Country: US (occurrence: US)
  Receive Date: 20160331
  Receipt Date: 20160331
  Transmission Date: 20160526
  Serious: Yes (Other)
  Sender: FDA-Public Use
  Company Number: US-TEVA-647612ACC

PATIENT
  Age: 25 Year
  Sex: Female
  Weight: 78.09 kg

DRUGS (1)
  1. PARAGARD T 380A [Suspect]
     Active Substance: COPPER
     Indication: CONTRACEPTION
     Dates: start: 20160112, end: 20160216

REACTIONS (4)
  - Coital bleeding [Unknown]
  - Device dislocation [Recovered/Resolved]
  - Menorrhagia [Unknown]
  - Dizziness [Unknown]

NARRATIVE: CASE EVENT DATE: 20160216
